FAERS Safety Report 5416946-1 (Version None)
Quarter: 2007Q3

REPORT INFORMATION
  Report Type: 
  Country: None (occurrence: None)
  Receive Date: 20070816
  Receipt Date: 20070807
  Transmission Date: 20080115
  Serious: Yes (Hospitalization)
  Sender: FDA-Public Use
  Company Number: US-JNJFOC-20070605167

PATIENT
  Sex: Female
  Weight: 74.84 kg

DRUGS (3)
  1. ULTRAM ER [Suspect]
     Indication: BACK PAIN
     Dosage: 2 X 100MG
     Route: 048
  2. ULTRACET [Concomitant]
     Indication: BREAKTHROUGH PAIN
     Route: 048
  3. MOBIC [Concomitant]
     Indication: PAIN
     Route: 048

REACTIONS (4)
  - DIZZINESS [None]
  - DRUG INEFFECTIVE [None]
  - LOWER LIMB FRACTURE [None]
  - MEDICATION RESIDUE [None]
